FAERS Safety Report 7970687-5 (Version None)
Quarter: 2011Q4

REPORT INFORMATION
  Report Type: 
  Country: None (occurrence: None)
  Receive Date: 20111212
  Receipt Date: 20111201
  Transmission Date: 20120403
  Serious: Yes (Hospitalization)
  Sender: FDA-Public Use
  Company Number: FR-NOVOPROD-340761

PATIENT

DRUGS (9)
  1. VICTOZA [Suspect]
     Indication: TYPE 2 DIABETES MELLITUS
     Dosage: 0.6 MG, QD
     Route: 058
     Dates: start: 20110101
  2. VICTOZA [Suspect]
     Dosage: 1.8 MG, QD
     Route: 058
     Dates: start: 20110701, end: 20111021
  3. DIAMICRON [Concomitant]
     Dosage: ONE DOSE
     Route: 048
  4. LESCOL [Concomitant]
  5. ALTEISDUO [Concomitant]
  6. PLAVIX [Concomitant]
  7. IKOREL [Concomitant]
  8. OMACOR [Concomitant]
  9. METFORMIN HCL [Concomitant]
     Dosage: 2 G, QD
     Route: 048

REACTIONS (1)
  - LIPASE INCREASED [None]
